FAERS Safety Report 8565149-0 (Version None)
Quarter: 2012Q3

REPORT INFORMATION
  Report Type: 
  Country: None (occurrence: None)
  Receive Date: 20120723
  Receipt Date: 20120709
  Transmission Date: 20120928
  Serious: Yes (Hospitalization)
  Sender: FDA-Public Use
  Company Number: PI-07564

PATIENT
  Age: 72 Year
  Sex: Female

DRUGS (2)
  1. CHLORAPREP [Suspect]
     Indication: THERAPEUTIC SKIN CARE TOPICAL
     Dosage: 26ML, ONCE, TOPICAL
     Route: 061
     Dates: start: 20120530
  2. CHLORAPREP [Suspect]
     Indication: PREOPERATIVE CARE
     Dosage: 26ML, ONCE, TOPICAL
     Route: 061
     Dates: start: 20120530

REACTIONS (4)
  - APPLICATION SITE REACTION [None]
  - BREAST CELLULITIS [None]
  - APPLICATION SITE ERYTHEMA [None]
  - APPLICATION SITE RASH [None]
